FAERS Safety Report 9799999 (Version 1)
Quarter: 2014Q1

REPORT INFORMATION
  Report Type: Spontaneous
  Country: US (occurrence: US)
  Receive Date: 20140106
  Receipt Date: 20140106
  Transmission Date: 20141002
  Serious: Yes (Hospitalization)
  Sender: FDA-Public Use
  Company Number: US-GILEAD-2010-0030770

PATIENT
  Sex: Male

DRUGS (15)
  1. LETAIRIS [Suspect]
     Indication: PULMONARY ARTERIAL HYPERTENSION
     Route: 048
     Dates: start: 20080924
  2. REVATIO [Concomitant]
  3. ASPIRIN [Concomitant]
  4. LASIX [Concomitant]
  5. COREG [Concomitant]
  6. NORVASC [Concomitant]
  7. TRANDOLAPRIL [Concomitant]
  8. CRESTOR [Concomitant]
  9. ZETIA [Concomitant]
  10. PREDNISONE [Concomitant]
  11. PERFORMIST [Concomitant]
  12. ADVAIR [Concomitant]
  13. AVANDIA [Concomitant]
  14. PREVACID [Concomitant]
  15. FERROUS SULFATE [Concomitant]

REACTIONS (1)
  - Haemoglobin decreased [Unknown]
